FAERS Safety Report 11658596 (Version 1)
Quarter: 2015Q4

REPORT INFORMATION
  Report Type: Spontaneous
  Country: CN (occurrence: CN)
  Receive Date: 20151026
  Receipt Date: 20151026
  Transmission Date: 20160304
  Serious: Yes (Hospitalization)
  Sender: FDA-Public Use
  Company Number: PHHY2015CN137393

PATIENT
  Sex: Female
  Weight: 56 kg

DRUGS (2)
  1. METHYCOBAL [Concomitant]
     Active Substance: METHYLCOBALAMIN
     Indication: NEUROPATHY PERIPHERAL
     Dosage: 0.5 MG, TID
     Route: 048
     Dates: start: 20150204, end: 20150504
  2. TEGRETOL [Suspect]
     Active Substance: CARBAMAZEPINE
     Indication: PRODUCT USED FOR UNKNOWN INDICATION
     Dosage: 0.2 G, BID
     Dates: start: 20150204, end: 20150504

REACTIONS (2)
  - Liver disorder [Recovering/Resolving]
  - Rash [Recovering/Resolving]
